FAERS Safety Report 6372718-5 (Version None)
Quarter: 2009Q3

REPORT INFORMATION
  Report Type: 
  Country: None (occurrence: None)
  Receive Date: 20090924
  Receipt Date: 20090410
  Transmission Date: 20100115
  Serious: Yes (Hospitalization, Other)
  Sender: FDA-Public Use
  Company Number: US-ASTRAZENECA-2008UW27616

PATIENT
  Sex: Male
  Weight: 72.6 kg

DRUGS (11)
  1. SEROQUEL [Suspect]
     Indication: SCHIZOAFFECTIVE DISORDER
     Dosage: FLUCTUATING DOSES TO 800 MG
     Route: 048
     Dates: start: 20020101, end: 20060101
  2. HALDOL [Concomitant]
  3. RISPERDAL [Concomitant]
  4. THORAZINE [Concomitant]
  5. ZOLOFT [Concomitant]
  6. PROGENTIN [Concomitant]
  7. CLONOPIN [Concomitant]
  8. AMANTADINE HCL [Concomitant]
  9. AMBIEN [Concomitant]
  10. HYDROXYZINE [Concomitant]
  11. PRILOSEC [Concomitant]

REACTIONS (1)
  - PANCREATITIS [None]
